FAERS Safety Report 8984082 (Version 1)
Quarter: 2012Q4

REPORT INFORMATION
  Report Type: Spontaneous
  Country: US (occurrence: None)
  Receive Date: 20121213
  Receipt Date: 20121213
  Transmission Date: 20130627
  Serious: Yes (Hospitalization)
  Sender: FDA-Public Use
  Company Number: 12003289

PATIENT
  Age: 82 Year
  Sex: Female

DRUGS (5)
  1. KLOR-CON M [Suspect]
     Indication: BLOOD POTASSIUM DECREASED
     Route: 048
     Dates: start: 20121016, end: 20121018
  2. KLOR-CON M [Suspect]
     Indication: BLOOD POTASSIUM DECREASED
     Route: 048
     Dates: start: 20121019, end: 20121030
  3. HYDROCHLOROTHIAZIDE [Concomitant]
  4. COLACE (DOCUSATE SODIUM) [Concomitant]
  5. ATENOLOL (ATENOLOL) [Concomitant]

REACTIONS (3)
  - Gastric cancer recurrent [None]
  - Vomiting [None]
  - Abdominal pain upper [None]
